FAERS Safety Report 16590885 (Version 1)
Quarter: 2019Q3

REPORT INFORMATION
  Report Type: Spontaneous
  Country: FR (occurrence: FR)
  Receive Date: 20190718
  Receipt Date: 20190718
  Transmission Date: 20191004
  Serious: Yes (Hospitalization)
  Sender: FDA-Public Use
  Company Number: FR-SA-2019SA188001

PATIENT
  Age: 39 Year
  Sex: Male

DRUGS (1)
  1. ZOLPIDEM TARTRATE. [Suspect]
     Active Substance: ZOLPIDEM TARTRATE
     Route: 042

REACTIONS (6)
  - Tachycardia [Recovered/Resolved]
  - Bradypnoea [Recovered/Resolved]
  - Hyperhidrosis [Unknown]
  - Drug abuse [Unknown]
  - Miosis [Unknown]
  - Hyperthermia [Unknown]
